FAERS Safety Report 4302170-2 (Version None)
Quarter: 2004Q1

REPORT INFORMATION
  Report Type: 
  Country: None (occurrence: None)
  Receive Date: 20040220
  Receipt Date: 20040217
  Transmission Date: 20041129
  Serious: Yes (Other)
  Sender: FDA-Public Use
  Company Number: STA-AE-04-MTX-064

PATIENT
  Age: 64 Year
  Sex: Male

DRUGS (2)
  1. METHOTREXATE [Suspect]
     Indication: RHEUMATOID ARTHRITIS
     Dosage: 2.5 MG 1X PER 1 DAY, ORAL
     Route: 048
     Dates: start: 20030101
  2. KARDEGIC (ACETYLSALICYLATE LYSINE) [Concomitant]

REACTIONS (4)
  - ACCIDENTAL OVERDOSE [None]
  - ANAEMIA MACROCYTIC [None]
  - FOLATE DEFICIENCY [None]
  - MEDICATION ERROR [None]
